FAERS Safety Report 9980451 (Version 2)
Quarter: 2014Q1

REPORT INFORMATION
  Report Type: Spontaneous
  Country: US (occurrence: US)
  Receive Date: 20140307
  Receipt Date: 20140311
  Transmission Date: 20141002
  Serious: No
  Sender: FDA-Public Use
  Company Number: US-BIOGENIDEC-2014BI017960

PATIENT
  Age: 65 Year
  Sex: Male

DRUGS (23)
  1. TYSABRI [Suspect]
     Indication: MULTIPLE SCLEROSIS
     Route: 042
     Dates: start: 20061017, end: 20140111
  2. FIORICET [Concomitant]
  3. SPIRIVA [Concomitant]
  4. MEGESTROL [Concomitant]
  5. FORADIL [Concomitant]
  6. DUTOPROL [Concomitant]
  7. VENTOLIN [Concomitant]
  8. DILAUDID [Concomitant]
  9. ARICEPT [Concomitant]
  10. FLOMAX [Concomitant]
  11. CYANOCOBALAMIN [Concomitant]
  12. NASONEX [Concomitant]
  13. MAGNESIUM [Concomitant]
  14. PRISTIQ [Concomitant]
  15. PROTONIX [Concomitant]
  16. DETROL [Concomitant]
  17. BACLOFEN [Concomitant]
  18. REGLAN [Concomitant]
  19. BONIVA [Concomitant]
  20. CARAFATE [Concomitant]
  21. KLONOPIN [Concomitant]
  22. TESTOSTERONE [Concomitant]
  23. VYVANSE [Concomitant]

REACTIONS (2)
  - Multiple sclerosis relapse [Unknown]
  - Optic neuritis [Not Recovered/Not Resolved]
